FAERS Safety Report 9274890 (Version 1)
Quarter: 2013Q2

REPORT INFORMATION
  Report Type: Spontaneous
  Country: IE (occurrence: None)
  Receive Date: 20130429
  Receipt Date: 20130429
  Transmission Date: 20140414
  Serious: Yes (Hospitalization, Other)
  Sender: FDA-Public Use
  Company Number: 2013P1004894

PATIENT
  Sex: 0

DRUGS (1)
  1. LITHIUM [Suspect]

REACTIONS (3)
  - Hypercalcaemia [None]
  - Blood parathyroid hormone increased [None]
  - Biopsy parathyroid gland abnormal [None]
